FAERS Safety Report 14182117 (Version 1)
Quarter: 2017Q4

REPORT INFORMATION
  Report Type: Report from Study
  Country: None (occurrence: ZA)
  Receive Date: 20171113
  Receipt Date: 20171113
  Transmission Date: 20180321
  Serious: Yes (Hospitalization)
  Sender: FDA-Public Use
  Company Number: ZA-ABBVIE-17K-143-2154683-00

PATIENT
  Age: 27 Year
  Sex: Male

DRUGS (1)
  1. HUMIRA [Suspect]
     Active Substance: ADALIMUMAB
     Indication: CROHN^S DISEASE
     Route: 058
     Dates: end: 2017

REACTIONS (9)
  - Malaise [Unknown]
  - Epistaxis [Not Recovered/Not Resolved]
  - Headache [Unknown]
  - Cerebral disorder [Unknown]
  - White blood cell count increased [Unknown]
  - Dizziness [Unknown]
  - Cough [Unknown]
  - Viral infection [Unknown]
  - Chest discomfort [Unknown]

NARRATIVE: CASE EVENT DATE: 2017
